FAERS Safety Report 7001161-0 (Version None)
Quarter: 2010Q3

REPORT INFORMATION
  Report Type: 
  Country: None (occurrence: None)
  Receive Date: 20100920
  Receipt Date: 20100303
  Transmission Date: 20110219
  Serious: Yes (Other)
  Sender: FDA-Public Use
  Company Number: US-ASTRAZENECA-2009SE19369

PATIENT
  Age: 55 Year
  Sex: Male

DRUGS (7)
  1. SEROQUEL [Suspect]
     Dosage: TWO QHS
     Route: 048
     Dates: start: 20031119
  2. LEXAPRO [Concomitant]
     Dates: start: 20030408
  3. WELLBUTRIN SR [Concomitant]
     Dates: start: 20030408
  4. PROPRANOLOL [Concomitant]
     Dates: start: 20030602
  5. LAMICTAL [Concomitant]
     Dates: start: 20030623
  6. XANAX [Concomitant]
     Dosage: 1-2 MG
     Dates: start: 20030825
  7. EFFEXOR [Concomitant]
     Dates: start: 20031223

REACTIONS (2)
  - DIABETES MELLITUS [None]
  - PANCREATITIS CHRONIC [None]
